FAERS Safety Report 14056809 (Version 1)
Quarter: 2017Q4

REPORT INFORMATION
  Report Type: Spontaneous
  Country: JP (occurrence: JP)
  Receive Date: 20171006
  Receipt Date: 20171006
  Transmission Date: 20180321
  Serious: Yes (Hospitalization, Other)
  Sender: FDA-Public Use
  Company Number: JP-BAYER-2017-162888

PATIENT
  Age: 84 Year
  Sex: Male
  Weight: 53.8 kg

DRUGS (13)
  1. LASIX [Concomitant]
     Active Substance: FUROSEMIDE
     Dosage: 5 MG, UNK
     Route: 042
     Dates: start: 20170820
  2. NICORANDIL [Concomitant]
     Active Substance: NICORANDIL
     Dosage: 2 MG, Q1HR
     Route: 042
     Dates: start: 20170820
  3. BLOPRESS [Concomitant]
     Active Substance: CANDESARTAN CILEXETIL
     Indication: HYPERTENSION
     Dosage: 4 MG, QD
     Route: 048
  4. HARNAL [Concomitant]
     Active Substance: TAMSULOSIN HYDROCHLORIDE
     Indication: BENIGN PROSTATIC HYPERPLASIA
     Dosage: 0.2 MG, QD
     Route: 048
  5. ADALAT CC [Concomitant]
     Active Substance: NIFEDIPINE
     Indication: HYPERTENSION
     Dosage: 40 MG, QD
  6. NEXAVAR [Suspect]
     Active Substance: SORAFENIB
     Indication: METASTASES TO LYMPH NODES
  7. TOLVAPTAN [Concomitant]
     Active Substance: TOLVAPTAN
     Dosage: 7.5 MG, QD
     Route: 048
     Dates: start: 20170823
  8. NEXAVAR [Suspect]
     Active Substance: SORAFENIB
     Indication: METASTASES TO LUNG
  9. HEPARIN SODIUM. [Concomitant]
     Active Substance: HEPARIN SODIUM
     Dosage: 600 DF, Q1HR
     Route: 042
     Dates: start: 20170820, end: 20170905
  10. NICORANDIL [Concomitant]
     Active Substance: NICORANDIL
     Dosage: 5 MG, TID
     Route: 048
     Dates: start: 20170827
  11. FLUITRAN [Concomitant]
     Active Substance: TRICHLORMETHIAZIDE
     Indication: HYPERTENSION
     Dosage: 1 MG, QD
     Route: 048
  12. WARFARIN [Concomitant]
     Active Substance: WARFARIN
     Dosage: 3 MG, QD
     Route: 048
     Dates: start: 20170906
  13. NEXAVAR [Suspect]
     Active Substance: SORAFENIB
     Indication: RENAL CANCER METASTATIC
     Dosage: DAILY DOSE 400 MG
     Route: 048
     Dates: start: 20120420, end: 20170821

REACTIONS (4)
  - Cardiomegaly [None]
  - Cardiac failure [Recovering/Resolving]
  - Pulmonary oedema [None]
  - Dyspnoea exertional [None]

NARRATIVE: CASE EVENT DATE: 20170817
